FAERS Safety Report 20137083 (Version 1)
Quarter: 2021Q4

REPORT INFORMATION
  Report Type: Spontaneous
  Country: NL (occurrence: NL)
  Receive Date: 20211201
  Receipt Date: 20211201
  Transmission Date: 20220303
  Serious: Yes (Hospitalization)
  Sender: FDA-Public Use
  Company Number: NL-SAOL THERAPEUTICS-2021SAO00396

PATIENT
  Age: 53 Year
  Sex: Male

DRUGS (14)
  1. BACLOFEN [Suspect]
     Active Substance: BACLOFEN
     Dosage: 192 MCG/DAY
     Route: 037
  2. BACLOFEN [Suspect]
     Active Substance: BACLOFEN
     Dosage: REDUCED THE MEDICATION IN THREE STEPS X 25%
     Route: 037
  3. BACLOFEN [Suspect]
     Active Substance: BACLOFEN
     Dosage: 50 MCG BOLUS, ONCE
     Route: 037
  4. BACLOFEN [Suspect]
     Active Substance: BACLOFEN
     Dosage: 240 MCG/DAY
     Route: 037
  5. BACLOFEN [Suspect]
     Active Substance: BACLOFEN
     Dosage: 384 MCG/DAY
     Route: 037
  6. BACLOFEN [Suspect]
     Active Substance: BACLOFEN
     Indication: Muscle spasticity
     Dosage: 40 MG
     Route: 048
  7. BACLOFEN [Suspect]
     Active Substance: BACLOFEN
     Dosage: 80 UNK
     Route: 048
  8. MORPHINE [Concomitant]
     Active Substance: MORPHINE
     Indication: Neuralgia
     Dosage: 1.2 MG/DAY
     Route: 037
  9. MORPHINE [Concomitant]
     Active Substance: MORPHINE
     Dosage: REDUCED THE MEDICATION IN THREE STEPS X 25%UNK
     Route: 037
  10. MORPHINE [Concomitant]
     Active Substance: MORPHINE
     Dosage: 1.2 MG/DAY
     Route: 037
  11. FLUCLOXACILLIN [Concomitant]
     Active Substance: FLUCLOXACILLIN
     Indication: Cellulitis
     Dosage: 4 G DAILY
     Route: 065
  12. PIPERACILLING/TAZOBACTAM [Concomitant]
     Dosage: 16/2 G/DAY
     Route: 065
  13. VANCOMYCIN [Concomitant]
     Active Substance: VANCOMYCIN
     Dosage: 2 G/DAY
     Route: 065
  14. FENTANYL [Concomitant]
     Active Substance: FENTANYL
     Dosage: 50 MCG
     Route: 062

REACTIONS (7)
  - Drug withdrawal syndrome [Recovered/Resolved]
  - Posterior reversible encephalopathy syndrome [Recovered/Resolved]
  - Subarachnoid haemorrhage [Recovered/Resolved]
  - Therapeutic product effect incomplete [Recovered/Resolved]
  - Hypertensive crisis [Recovered/Resolved]
  - Staphylococcal infection [Recovered/Resolved]
  - Pseudomonas infection [Recovered/Resolved]
